FAERS Safety Report 8508973-2 (Version None)
Quarter: 2012Q3

REPORT INFORMATION
  Report Type: 
  Country: None (occurrence: None)
  Receive Date: 20120703
  Receipt Date: 20120628
  Transmission Date: 20120928
  Serious: Yes (Hospitalization)
  Sender: FDA-Public Use
  Company Number: 2012SP024996

PATIENT
  Age: 63 Year
  Weight: 68 kg

DRUGS (15)
  1. REBAMIPIDE [Concomitant]
  2. PEG-INTRON [Suspect]
     Indication: HEPATITIS C
     Dosage: 1.5 MCG/KG; QW; SC
     Route: 058
     Dates: end: 20120424
  3. PEG-INTRON [Suspect]
     Indication: HEPATITIS C
     Dosage: 1.5 MCG/KG; QW; SC
     Route: 058
     Dates: start: 20120508
  4. AMLODIPINE [Concomitant]
  5. AMLODIPINE [Concomitant]
  6. FLOMAX [Concomitant]
  7. LANSOPRAZOLE [Concomitant]
  8. REBETOL [Suspect]
     Indication: HEPATITIS C
     Dosage: 800 MG; QD; PO, 400 MG; QD; PO
     Route: 048
     Dates: end: 20120402
  9. REBETOL [Suspect]
     Indication: HEPATITIS C
     Dosage: 800 MG; QD; PO, 400 MG; QD; PO
     Route: 048
     Dates: start: 20120403, end: 20120424
  10. TELAVIC (ANTIVIRALS NOS) [Suspect]
     Indication: HEPATITIS C
     Dosage: 1500 MG; QD; PO
     Route: 048
     Dates: start: 20120313, end: 20120424
  11. LEVOTHYROXINE SODIUM [Concomitant]
  12. LACTIC ACID [Concomitant]
  13. ENALAPRIL MALEATE [Concomitant]
  14. ENALAPRIL MALEATE [Concomitant]
  15. LASIX [Concomitant]

REACTIONS (9)
  - ENANTHEMA [None]
  - HEADACHE [None]
  - PYELONEPHRITIS [None]
  - HAEMOGLOBIN DECREASED [None]
  - HYPOKALAEMIA [None]
  - APHTHOUS STOMATITIS [None]
  - DRUG ERUPTION [None]
  - BACK PAIN [None]
  - PYREXIA [None]
